FAERS Safety Report 7798284-5 (Version None)
Quarter: 2011Q4

REPORT INFORMATION
  Report Type: 
  Country: None (occurrence: None)
  Receive Date: 20111005
  Receipt Date: 20110928
  Transmission Date: 20120403
  Serious: Yes (Other)
  Sender: FDA-Public Use
  Company Number: PHEH2011US01155

PATIENT
  Sex: Female

DRUGS (2)
  1. LOVENOX [Concomitant]
  2. ZOMETA [Suspect]
     Indication: METASTASES TO BONE
     Dates: start: 20090101

REACTIONS (1)
  - OSTEONECROSIS OF JAW [None]
